FAERS Safety Report 25644170 (Version 1)
Quarter: 2025Q3

REPORT INFORMATION
  Report Type: Spontaneous
  Country: US (occurrence: None)
  Receive Date: 20250803
  Receipt Date: 20250803
  Transmission Date: 20251021
  Serious: Yes (Life-Threatening, Hospitalization, Disabling, Other)
  Sender: FDA-CTU
  Company Number: None

PATIENT
  Age: 79 Year
  Sex: Female
  Weight: 59.85 kg

DRUGS (5)
  1. JEUVEAU [Suspect]
     Active Substance: PRABOTULINUMTOXINA-XVFS
  2. Olmesartan 30 mg twice a day [Concomitant]
  3. Probiotic d [Concomitant]
  4. VITAMINS [Concomitant]
     Active Substance: VITAMINS
  5. magnesium zinc [Concomitant]

REACTIONS (3)
  - Cranial nerve paralysis [None]
  - Muscular weakness [None]
  - Muscle spasms [None]

NARRATIVE: CASE EVENT DATE: 20250316
